FAERS Safety Report 20988022 (Version 1)
Quarter: 2022Q2

REPORT INFORMATION
  Report Type: Spontaneous
  Country: NL (occurrence: NL)
  Receive Date: 20220621
  Receipt Date: 20220621
  Transmission Date: 20220720
  Serious: Yes (Hospitalization)
  Sender: FDA-Public Use
  Company Number: None

PATIENT
  Age: 69 Year
  Sex: Female
  Weight: 97.5 kg

DRUGS (16)
  1. FLUOROURACIL [Suspect]
     Active Substance: FLUOROURACIL
     Indication: Pancreatic carcinoma
     Dosage: EVERY 2 WEEKS, HAD IT TWICE,FLUOROURACIL INJECTION/INFUSION / BRAND NAME NOT SPECIFIED
     Dates: start: 20220107, end: 20220123
  2. OXALIPLATIN [Suspect]
     Active Substance: OXALIPLATIN
     Indication: Pancreatic carcinoma
     Dosage: EVERY 2 WEEKS, HAD IT TWICE,OXALIPLATINE INFOPL CONC 5MG/ML / BRAND NAME NOT SPECIFIED
     Dates: start: 20220107, end: 20220123
  3. FOLIC ACID [Suspect]
     Active Substance: FOLIC ACID
     Indication: Pancreatic carcinoma
     Dosage: EVERY 2 WEEKS, HAD IT TWICE,FOLIC ACID INJVLST 10MG/ML / BRAND NAME NOT SPECIFIED
     Dates: start: 20220107, end: 20220123
  4. IRINOTECAN [Suspect]
     Active Substance: IRINOTECAN
     Indication: Pancreatic carcinoma
     Dosage: EVERY 2 WEEKS, HAD IT TWICE,IRINOTECAN INFOPL CONC 20MG/ML / BRAND NAME NOT SPECIFIED
     Dates: start: 20220107, end: 20220123
  5. METOPROLOL SUCCINATE [Concomitant]
     Active Substance: METOPROLOL SUCCINATE
     Indication: Product used for unknown indication
     Dosage: METOPROLOL TABLET MGA 50MG (SUCCINATE) / BRAND NAME NOT SPECIFIED,THERAPY START DATE AND END DATE :
  6. LEVOCETIRIZINE [Concomitant]
     Active Substance: LEVOCETIRIZINE
     Indication: Product used for unknown indication
     Dosage: LEVOCETIRIZINE TABLET FO 5MG / BRAND NAME NOT SPECIFIED,THERAPY START DATE AND END DATE : ASKU
  7. NOVORAPID [Concomitant]
     Active Substance: INSULIN ASPART
     Indication: Product used for unknown indication
     Dosage: INJECTION FLUID, FLEXPEN 100 IU/ML,THERAPY START DATE AND END DATE : ASKU, NSULIN ASPART INJVLST 100
  8. LISINOPRIL [Concomitant]
     Active Substance: LISINOPRIL
     Indication: Product used for unknown indication
     Dosage: LISINOPRIL TABLET 10MG / BRAND NAME NOT SPECIFIED,THERAPY START DATE AND END DATE : ASKU
  9. INSULIN GLARGINE [Concomitant]
     Active Substance: INSULIN GLARGINE
     Indication: Product used for unknown indication
     Dosage: INJECTION FLUID, 100 UNITS/ML,INSULINE GLARGINE 100E/ML INJVLST / ABASAGLAR INJVLST 100E/ML PEN 3ML
  10. VENTOLIN [Concomitant]
     Active Substance: ALBUTEROL SULFATE
     Indication: Product used for unknown indication
     Dosage: SALBUTAMOL INHALATION POWDER 200UG/DO / VENTOLIN DISKUS INHPDR 200MCG 60DO,THERAPY START DATE AND EN
  11. PHENETHICILLIN POTASSIUM [Concomitant]
     Active Substance: PHENETHICILLIN POTASSIUM
     Indication: Product used for unknown indication
     Dosage: FENETICILLINE CAPSULE 250MG / BROXIL CAPSULE 250MG,THERAPY START DATE AND END DATE : ASKU
  12. CREON [Concomitant]
     Active Substance: PANCRELIPASE AMYLASE\PANCRELIPASE LIPASE\PANCRELIPASE PROTEASE
     Indication: Product used for unknown indication
     Dosage: CAPSULE MSR 25000 AND 10000 WITH FOOD INTAKE,AMYLA/LIPA/PROTEA CAP MSR (CREON+CREON 10000) / CREON 1
  13. SALFLUTIN [Concomitant]
     Indication: Product used for unknown indication
     Dosage: INHALATION POWDER, 50/500 UG/DOSE ,THERAPY START DATE AND END DATE : ASKU; SALMETEROL/FLUTICASON INH
  14. OMEPRAZOLE [Concomitant]
     Active Substance: OMEPRAZOLE
     Indication: Product used for unknown indication
     Dosage: 40 MG, CAPSULE+ ALSO VIA INFUSION,OMEPRAZOL CAPSULE MSR 40MG / BRAND NAME NOT SPECIFIED,THERAPY STAR
  15. METFORMIN [Concomitant]
     Active Substance: METFORMIN HYDROCHLORIDE
     Indication: Product used for unknown indication
     Dosage: ,METFORMIN TABLET MGA 500MG / BRAND NAME NOT SPECIFIED,THERAPY START DATE AND END DATE : ASKU
  16. SPIRONOLACTONE [Concomitant]
     Active Substance: SPIRONOLACTONE
     Indication: Product used for unknown indication
     Dosage: SPIRONOLACTON TABLET 12.5MG / BRAND NAME NOT SPECIFIED,THERAPY START DATE AND END DATE : ASKU

REACTIONS (1)
  - Mucosal inflammation [Recovered/Resolved]

NARRATIVE: CASE EVENT DATE: 20220124
